FAERS Safety Report 8550700-7 (Version None)
Quarter: 2012Q3

REPORT INFORMATION
  Report Type: 
  Country: None (occurrence: None)
  Receive Date: 20120730
  Receipt Date: 20120726
  Transmission Date: 20120928
  Serious: Yes (Other)
  Sender: FDA-Public Use
  Company Number: US-GLAXOSMITHKLINE-A0987260A

PATIENT
  Age: 56 Year
  Sex: Female

DRUGS (9)
  1. ASPIRIN [Suspect]
  2. VALIUM [Concomitant]
     Indication: PSYCHOTHERAPY
     Dosage: 2MG AS REQUIRED
  3. PROPRANOLOL [Suspect]
  4. PLAVIX [Suspect]
     Route: 048
  5. PRINZIDE [Concomitant]
  6. ATENOLOL [Suspect]
  7. ALPRAZOLAM [Concomitant]
     Indication: PSYCHOTHERAPY
     Route: 048
  8. BUPROPION HCL [Concomitant]
     Indication: PSYCHOTHERAPY
     Route: 048
  9. REBIF [Suspect]
     Indication: MULTIPLE SCLEROSIS
     Dosage: 44MCG THREE TIMES PER WEEK
     Route: 058
     Dates: start: 20031017

REACTIONS (8)
  - CEREBRAL ISCHAEMIA [None]
  - FALL [None]
  - GAIT DISTURBANCE [None]
  - HEADACHE [None]
  - LACUNAR INFARCTION [None]
  - DYSGRAPHIA [None]
  - HEAD INJURY [None]
  - NAUSEA [None]
